FAERS Safety Report 9156839 (Version 2)
Quarter: 2013Q1

REPORT INFORMATION
  Report Type: Spontaneous
  Country: IT (occurrence: None)
  Receive Date: 20130206
  Receipt Date: 20130227
  Transmission Date: 20140127
  Serious: Yes (Hospitalization)
  Sender: FDA-Public Use
  Company Number: 2013CP000007

PATIENT
  Age: 86 Year
  Sex: Female

DRUGS (7)
  1. PERFALGAN [Suspect]
     Indication: HYPERPYREXIA
     Dosage: 1 DOSAGE FORM; QD; IV
     Route: 042
     Dates: start: 20120303, end: 20120306
  2. SULTAMICILLIN [Suspect]
     Indication: HYPERPYREXIA
     Dosage: 1 DOSAGE FORM; TID; IV
     Route: 042
     Dates: start: 20120303, end: 20120306
  3. WARFARIN [Concomitant]
  4. CORDARONE [Concomitant]
  5. OMNIC [Concomitant]
  6. VERAPAMIL [Concomitant]
  7. SPIRIVA [Concomitant]

REACTIONS (6)
  - Liver disorder [None]
  - Blood alkaline phosphatase increased [None]
  - Alanine aminotransferase increased [None]
  - Aspartate aminotransferase increased [None]
  - Gamma-glutamyltransferase increased [None]
  - Iatrogenic injury [None]
